FAERS Safety Report 5907483-6 (Version None)
Quarter: 2008Q4

REPORT INFORMATION
  Report Type: 
  Country: None (occurrence: None)
  Receive Date: 20081003
  Receipt Date: 20080929
  Transmission Date: 20090506
  Serious: Yes (Hospitalization, Disabling)
  Sender: FDA-Public Use
  Company Number: D0057984A

PATIENT
  Age: 35 Year
  Sex: Male
  Weight: 76 kg

DRUGS (3)
  1. TRIZIVIR [Suspect]
     Indication: HIV INFECTION
     Dosage: 1TAB TWICE PER DAY
     Route: 048
     Dates: start: 20070101, end: 20080601
  2. VIREAD [Suspect]
     Dosage: 1TAB IN THE MORNING
     Route: 048
  3. COTRIM [Concomitant]
     Dosage: 1TAB THREE TIMES PER WEEK
     Route: 048

REACTIONS (7)
  - CARDIAC FAILURE [None]
  - CIRCULATORY COLLAPSE [None]
  - CONGESTIVE CARDIOMYOPATHY [None]
  - HYPERHIDROSIS [None]
  - NASOPHARYNGITIS [None]
  - PLEURAL EFFUSION [None]
  - PYREXIA [None]
